FAERS Safety Report 6613857-0 (Version None)
Quarter: 2010Q1

REPORT INFORMATION
  Report Type: 
  Country: None (occurrence: None)
  Receive Date: 20100304
  Receipt Date: 20100223
  Transmission Date: 20100710
  Serious: Yes (Hospitalization)
  Sender: FDA-Public Use
  Company Number: JP-EISAI INC.-E3810-03545-SPO-JP

PATIENT
  Age: 76 Year
  Sex: Male
  Weight: 54 kg

DRUGS (11)
  1. PARIET (RABEPRAZOLE) [Suspect]
     Route: 048
     Dates: start: 20100216, end: 20100218
  2. CEFDINIR [Suspect]
     Route: 048
     Dates: start: 20100216, end: 20100218
  3. CONIEL [Concomitant]
     Dosage: UNKNOWN
  4. IOMERON-350 [Concomitant]
     Dosage: UNKNOWN
     Route: 013
     Dates: start: 20100217, end: 20100217
  5. ASASURFAN [Concomitant]
     Dosage: UNKNOWN
     Route: 048
  6. RESTREAM [Concomitant]
     Dosage: UNKNOWN
     Route: 048
  7. TANATRIL [Concomitant]
     Indication: HYPERTENSION
     Dosage: UNKNOWN
     Route: 048
  8. URINORM [Concomitant]
     Dosage: UNKNOWN
  9. BUFFERIN [Concomitant]
     Route: 048
  10. SIGMART [Concomitant]
     Dosage: UNKNOWN
  11. SELBEX [Concomitant]
     Route: 048

REACTIONS (2)
  - RASH [None]
  - RENAL IMPAIRMENT [None]
